FAERS Safety Report 14120220 (Version 3)
Quarter: 2017Q4

REPORT INFORMATION
  Report Type: Spontaneous
  Country: US (occurrence: US)
  Receive Date: 20171024
  Receipt Date: 20171128
  Transmission Date: 20180321
  Serious: Yes (Other)
  Sender: FDA-Public Use
  Company Number: PHEH2017US033711

PATIENT
  Age: 75 Year
  Sex: Male

DRUGS (1)
  1. COMTAN [Suspect]
     Active Substance: ENTACAPONE
     Indication: PRODUCT USED FOR UNKNOWN INDICATION
     Dosage: UNK (4 OR 5 TIMES A DAY)
     Route: 065

REACTIONS (2)
  - Choking [Unknown]
  - Dysphagia [Unknown]
